FAERS Safety Report 21285533 (Version 1)
Quarter: 2022Q3

REPORT INFORMATION
  Report Type: Spontaneous
  Country: DE (occurrence: DE)
  Receive Date: 20220902
  Receipt Date: 20220902
  Transmission Date: 20221026
  Serious: Yes (Hospitalization, Other)
  Sender: FDA-Public Use
  Company Number: DE-SUN PHARMACEUTICAL INDUSTRIES LTD-2022RR-352852

PATIENT
  Age: 16 Year
  Sex: Male
  Weight: 77.4 kg

DRUGS (1)
  1. ISOTRETINOIN [Suspect]
     Active Substance: ISOTRETINOIN
     Indication: Acne
     Dosage: UNK
     Route: 048
     Dates: start: 202205, end: 202208

REACTIONS (9)
  - SAPHO syndrome [Not Recovered/Not Resolved]
  - Sacral pain [Unknown]
  - Mobility decreased [Unknown]
  - Eschar [Unknown]
  - Arthralgia [Unknown]
  - C-reactive protein increased [Unknown]
  - Leukocytosis [Unknown]
  - Gait disturbance [Unknown]
  - Arthritis [Unknown]

NARRATIVE: CASE EVENT DATE: 20220101
